FAERS Safety Report 20611852 (Version 2)
Quarter: 2022Q2

REPORT INFORMATION
  Report Type: Spontaneous
  Country: US (occurrence: US)
  Receive Date: 20220318
  Receipt Date: 20220523
  Transmission Date: 20220721
  Serious: No
  Sender: FDA-Public Use
  Company Number: US-PFIZER INC-202200300106

PATIENT
  Age: 79 Year
  Sex: Female
  Weight: 72.57 kg

DRUGS (3)
  1. ESTRING [Suspect]
     Active Substance: ESTRADIOL
     Indication: Vaginal disorder
     Dosage: 2 MG (1 RING EVERY 90 DAYS)
     Route: 061
  2. ESTRING [Suspect]
     Active Substance: ESTRADIOL
     Indication: Urinary tract disorder
  3. ESTRING [Suspect]
     Active Substance: ESTRADIOL
     Indication: Menopause

REACTIONS (1)
  - Drug ineffective [Unknown]

NARRATIVE: CASE EVENT DATE: 20220114
